FAERS Safety Report 7323223-0 (Version None)
Quarter: 2011Q1

REPORT INFORMATION
  Report Type: 
  Country: None (occurrence: None)
  Receive Date: 20110216
  Receipt Date: 20110131
  Transmission Date: 20110831
  Serious: Yes (Hospitalization)
  Sender: FDA-Public Use
  Company Number: UTC-005051

PATIENT
  Age: 59 Year
  Sex: Female
  Weight: 59.1 kg

DRUGS (4)
  1. REMODULIN [Suspect]
     Indication: PULMONARY ARTERIAL HYPERTENSION
     Dosage: 28.368 UG/KG (0.0197 UG/KG,1 IN 1 MIN),INTRAVENOUS
     Route: 042
     Dates: start: 20061121
  2. TRACLEER [Concomitant]
  3. REVATIO [Concomitant]
  4. DIURETICS (DIURETICS) [Concomitant]

REACTIONS (1)
  - DYSPNOEA [None]
